FAERS Safety Report 25439793 (Version 1)
Quarter: 2025Q2

REPORT INFORMATION
  Report Type: Spontaneous
  Country: US (occurrence: None)
  Receive Date: 20250613
  Receipt Date: 20250613
  Transmission Date: 20250716
  Serious: Yes (Other)
  Sender: FDA-CTU
  Company Number: None

PATIENT
  Age: 67 Year
  Sex: Female
  Weight: 132.75 kg

DRUGS (1)
  1. LEXAPRO [Suspect]
     Active Substance: ESCITALOPRAM OXALATE
     Dates: start: 20250505

REACTIONS (12)
  - Dizziness [None]
  - Balance disorder [None]
  - Fall [None]
  - Head injury [None]
  - General physical health deterioration [None]
  - Product dispensing error [None]
  - Wrong product administered [None]
  - Hypersomnia [None]
  - Brain fog [None]
  - Spinal column injury [None]
  - Contusion [None]
  - Contusion [None]

NARRATIVE: CASE EVENT DATE: 20250528
